FAERS Safety Report 11095312 (Version 1)
Quarter: 2015Q2

REPORT INFORMATION
  Report Type: Spontaneous
  Country: US (occurrence: US)
  Receive Date: 20150506
  Receipt Date: 20150506
  Transmission Date: 20150821
  Serious: No
  Sender: FDA-Public Use
  Company Number: US-SA-2015SA001504

PATIENT
  Age: 80 Year
  Sex: Male

DRUGS (4)
  1. APIDRA SOLOSTAR [Suspect]
     Active Substance: INSULIN GLULISINE
     Indication: TYPE 1 DIABETES MELLITUS
     Dosage: DOSE- 5-6 UNITS
     Route: 065
     Dates: start: 2005
  2. LEVEMIR [Concomitant]
     Active Substance: INSULIN DETEMIR
  3. APIDRA SOLOSTAR [Suspect]
     Active Substance: INSULIN GLULISINE
     Indication: TYPE 1 DIABETES MELLITUS
     Dosage: DOSE- 5-6 UNITS
     Route: 065
     Dates: start: 2005
  4. SOLOSTAR [Concomitant]
     Active Substance: DEVICE
     Indication: TYPE 1 DIABETES MELLITUS
     Dates: start: 2005

REACTIONS (3)
  - Incorrect product storage [Unknown]
  - Blood glucose increased [Recovered/Resolved]
  - Product odour abnormal [Unknown]
